FAERS Safety Report 16134487 (Version 2)
Quarter: 2019Q2

REPORT INFORMATION
  Report Type: Spontaneous
  Country: DE (occurrence: DE)
  Receive Date: 20190329
  Receipt Date: 20190412
  Transmission Date: 20190711
  Serious: Yes (Death, Hospitalization, Other)
  Sender: FDA-Public Use
  Company Number: DE-PFIZER INC-2019137437

PATIENT
  Age: 62 Year
  Sex: Female
  Weight: 62 kg

DRUGS (9)
  1. DILTIAZEM HCL [Suspect]
     Active Substance: DILTIAZEM HYDROCHLORIDE
     Dosage: UNK
  2. XARELTO [Suspect]
     Active Substance: RIVAROXABAN
     Indication: THROMBOSIS
     Dosage: 20 MG, 1X/DAY
     Dates: start: 20170713, end: 20170731
  3. CLEXANE [Suspect]
     Active Substance: ENOXAPARIN SODIUM
     Dosage: UNK
  4. VALSARTAN 1A PHARMA [Concomitant]
     Active Substance: VALSARTAN
     Dosage: 80 MG, UNK
  5. MONO EMBOLEX [Concomitant]
     Active Substance: CERTOPARIN SODIUM
     Dosage: UNK
     Dates: start: 20170731
  6. XARELTO [Suspect]
     Active Substance: RIVAROXABAN
     Indication: VENOUS THROMBOSIS
     Dosage: 30 MG, 1X/DAY
     Dates: start: 20170622, end: 20170713
  7. DILTIAZEM. [Concomitant]
     Active Substance: DILTIAZEM
     Dosage: 90 MG, UNK
  8. PIROXICAM ACIS [Suspect]
     Active Substance: PIROXICAM
     Indication: ARTHRALGIA
     Dosage: 20 MG, ON DEMAND
     Dates: start: 2013, end: 2017
  9. PANTOPRAZOLE [Concomitant]
     Active Substance: PANTOPRAZOLE
     Dosage: 40 MG, UNK

REACTIONS (47)
  - Chronic gastritis [Unknown]
  - Thrombocytopenia [Unknown]
  - Viral myocarditis [Unknown]
  - Anaemia [Unknown]
  - Lymphadenopathy [Unknown]
  - Shock haemorrhagic [Fatal]
  - Visual impairment [Unknown]
  - Arthralgia [Unknown]
  - Deep vein thrombosis [Unknown]
  - Arteriosclerosis [Unknown]
  - Aortic arteriosclerosis [Unknown]
  - Headache [Unknown]
  - Blood lactate dehydrogenase increased [Unknown]
  - Retroperitoneal haemorrhage [Unknown]
  - Asthenia [Unknown]
  - Hypokalaemia [Unknown]
  - Decreased appetite [Unknown]
  - Serum ferritin increased [Unknown]
  - Epistaxis [Unknown]
  - Duodenal polyp [Unknown]
  - Back pain [Unknown]
  - Haemophagocytic lymphohistiocytosis [Unknown]
  - Malnutrition [Unknown]
  - Weight decreased [Unknown]
  - Pericardial fibrosis [Unknown]
  - Pyrexia [Unknown]
  - Apathy [Unknown]
  - Circulatory collapse [Unknown]
  - Pericarditis [Unknown]
  - Glomerulosclerosis [Unknown]
  - Hyponatraemia [Unknown]
  - Hypochromic anaemia [Unknown]
  - Myocarditis [Unknown]
  - Pancytopenia [Fatal]
  - Dizziness [Unknown]
  - Cardiac failure [Fatal]
  - Arrhythmogenic right ventricular dysplasia [Fatal]
  - Diarrhoea [Unknown]
  - Hypocalcaemia [Unknown]
  - Gastrointestinal inflammation [Unknown]
  - Blood pressure decreased [Unknown]
  - Retroperitoneal haematoma [Fatal]
  - Leukopenia [Unknown]
  - General physical health deterioration [Unknown]
  - Folate deficiency [Unknown]
  - Splenomegaly [Unknown]
  - Reticulocyte count decreased [Unknown]

NARRATIVE: CASE EVENT DATE: 20170625
